FAERS Safety Report 10914114 (Version 1)
Quarter: 2015Q1

REPORT INFORMATION
  Report Type: Spontaneous
  Country: DE (occurrence: DE)
  Receive Date: 20150313
  Receipt Date: 20150313
  Transmission Date: 20150721
  Serious: Yes (Other)
  Sender: FDA-Public Use
  Company Number: DE-TEVA-546553GER

PATIENT
  Age: 36 Year
  Sex: Female
  Weight: 70 kg

DRUGS (1)
  1. AMOXI [Suspect]
     Active Substance: AMOXICILLIN
     Indication: DENTAL IMPLANTATION
     Dosage: 2 DOSAGE FORMS DAILY;
     Route: 065
     Dates: start: 20150216

REACTIONS (6)
  - Pruritus [Recovered/Resolved]
  - Nausea [Recovered/Resolved]
  - Circulatory collapse [Recovered/Resolved]
  - Dizziness [Recovered/Resolved]
  - Joint swelling [Recovered/Resolved]
  - Rash [Recovered/Resolved]

NARRATIVE: CASE EVENT DATE: 20150216
